FAERS Safety Report 16799117 (Version 2)
Quarter: 2019Q3

REPORT INFORMATION
  Report Type: Spontaneous
  Country: US (occurrence: US)
  Receive Date: 20190912
  Receipt Date: 20190919
  Transmission Date: 20191005
  Serious: Yes (Hospitalization)
  Sender: FDA-Public Use
  Company Number: US-PFIZER INC-2019391172

PATIENT
  Age: 75 Year
  Sex: Female
  Weight: 81.18 kg

DRUGS (2)
  1. PROCARDIA [Suspect]
     Active Substance: NIFEDIPINE
     Indication: HYPERTENSION
     Dosage: 30 MG, UNK
     Dates: start: 2014
  2. PROCARDIA [Suspect]
     Active Substance: NIFEDIPINE
     Indication: CEREBROVASCULAR ACCIDENT
     Dosage: 60 MG BY MOUTH IN MORNING AND 60MG BY MOUTH AT NIGHT)
     Route: 048

REACTIONS (4)
  - Cerebrovascular accident [Recovered/Resolved]
  - Disease recurrence [Recovered/Resolved]
  - Myalgia [Not Recovered/Not Resolved]
  - Somnolence [Not Recovered/Not Resolved]

NARRATIVE: CASE EVENT DATE: 2019
